FAERS Safety Report 23278029 (Version 3)
Quarter: 2024Q2

REPORT INFORMATION
  Report Type: Report from Study
  Country: CO (occurrence: CO)
  Receive Date: 20231208
  Receipt Date: 20240418
  Transmission Date: 20240716
  Serious: Yes (Hospitalization, Other)
  Sender: FDA-Public Use
  Company Number: CO-Merck Healthcare KGaA-E2B_80081714

PATIENT
  Age: 11 Year
  Sex: Female

DRUGS (2)
  1. SAIZEN [Suspect]
     Active Substance: SOMATROPIN
     Indication: Growth hormone deficiency
     Route: 058
     Dates: start: 20130730, end: 2019
  2. SAIZEN [Suspect]
     Active Substance: SOMATROPIN
     Route: 058

REACTIONS (7)
  - Pain in extremity [Unknown]
  - Muscular weakness [Unknown]
  - Brain neoplasm [Recovering/Resolving]
  - Muscle strength abnormal [Recovered/Resolved]
  - Headache [Unknown]
  - Needle fatigue [Unknown]
  - Drug ineffective [Unknown]

NARRATIVE: CASE EVENT DATE: 20190801
